FAERS Safety Report 21682725 (Version 1)
Quarter: 2022Q4

REPORT INFORMATION
  Report Type: Spontaneous
  Country: SI (occurrence: SI)
  Receive Date: 20221205
  Receipt Date: 20221205
  Transmission Date: 20230112
  Serious: Yes (Other)
  Sender: FDA-Public Use
  Company Number: SI-002147023-NVSC2022SI223135

PATIENT
  Age: 44 Year
  Sex: Female

DRUGS (2)
  1. EPIRUBICIN [Suspect]
     Active Substance: EPIRUBICIN
     Indication: Breast cancer
     Dosage: UNK (1 CYCLE)
     Route: 065
     Dates: start: 201705
  2. CYCLOPHOSPHAMIDE [Concomitant]
     Active Substance: CYCLOPHOSPHAMIDE
     Indication: Product used for unknown indication
     Dosage: UNK (1 CYCLE)
     Route: 065
     Dates: start: 201705

REACTIONS (4)
  - Metastases to bone [Recovering/Resolving]
  - Metastases to pelvis [Recovering/Resolving]
  - Bone pain [Recovering/Resolving]
  - Metastases to spine [Recovering/Resolving]

NARRATIVE: CASE EVENT DATE: 20170501
